FAERS Safety Report 10711469 (Version 2)
Quarter: 2015Q1

REPORT INFORMATION
  Report Type: Report from Study
  Country: CA (occurrence: CA)
  Receive Date: 20150114
  Receipt Date: 20150213
  Transmission Date: 20150721
  Serious: Yes (Hospitalization, Other)
  Sender: FDA-Public Use
  Company Number: CA-GILEAD-2015-0130443

PATIENT
  Age: 48 Year
  Sex: Male

DRUGS (1)
  1. LEDIPASVIR/SOFOSBUVIR [Suspect]
     Active Substance: LEDIPASVIR\SOFOSBUVIR
     Indication: HEPATITIS C
     Dosage: 1 DF, UNK
     Route: 065

REACTIONS (4)
  - Vomiting [Unknown]
  - Blood pressure decreased [Recovered/Resolved]
  - Encephalopathy [Unknown]
  - Dehydration [Unknown]

NARRATIVE: CASE EVENT DATE: 201412
